FAERS Safety Report 16834555 (Version 3)
Quarter: 2019Q4

REPORT INFORMATION
  Report Type: Report from Study
  Country: BE (occurrence: BE)
  Receive Date: 20190920
  Receipt Date: 20191031
  Transmission Date: 20200122
  Serious: Yes (Hospitalization)
  Sender: FDA-Public Use
  Company Number: BE-JNJFOC-20190911295

PATIENT
  Age: 58 Year
  Sex: Female
  Weight: 70.2 kg

DRUGS (3)
  1. ESKETAMINE [Suspect]
     Active Substance: ESKETAMINE
     Indication: DEPRESSION
     Dosage: MOST RECENT DOSE: 03-SEP-2019
     Dates: start: 20170330
  2. BUPROPION. [Concomitant]
     Active Substance: BUPROPION
  3. EDRONAX [Concomitant]
     Active Substance: REBOXETINE MESYLATE

REACTIONS (1)
  - Depression [Recovered/Resolved]

NARRATIVE: CASE EVENT DATE: 20190906
